FAERS Safety Report 6183356-1 (Version None)
Quarter: 2009Q2

REPORT INFORMATION
  Report Type: 
  Country: None (occurrence: None)
  Receive Date: 20090507
  Receipt Date: 20090428
  Transmission Date: 20091009
  Serious: Yes (Hospitalization)
  Sender: FDA-Public Use
  Company Number: IT-TYCO HEALTHCARE/MALLINCKRODT-T200900957

PATIENT

DRUGS (4)
  1. OPTIRAY 300 [Suspect]
     Indication: COMPUTERISED TOMOGRAM
     Dosage: 110 ML, SINGLE
     Route: 042
     Dates: start: 20090427, end: 20090427
  2. LORAZEPAM [Concomitant]
     Dosage: UNK
     Dates: start: 20070101, end: 20090101
  3. ALIFLUS [Concomitant]
     Dosage: UNK
     Dates: start: 20070101, end: 20090101
  4. VENTOLIN [Concomitant]
     Dosage: UNK
     Dates: start: 20070101, end: 20090101

REACTIONS (4)
  - ATRIOVENTRICULAR BLOCK SECOND DEGREE [None]
  - BRADYCARDIA [None]
  - FLUSHING [None]
  - PHARYNGEAL OEDEMA [None]
